FAERS Safety Report 13113084 (Version 2)
Quarter: 2017Q1

REPORT INFORMATION
  Report Type: Report from Study
  Country: HN (occurrence: HN)
  Receive Date: 20170113
  Receipt Date: 20170119
  Transmission Date: 20170428
  Serious: Yes (Death, Hospitalization)
  Sender: FDA-Public Use
  Company Number: PHHY2016HN170297

PATIENT
  Sex: Male
  Weight: 65.9 kg

DRUGS (3)
  1. FUROSEMIDE. [Concomitant]
     Active Substance: FUROSEMIDE
     Indication: PRODUCT USED FOR UNKNOWN INDICATION
     Dosage: 40 MG, TID (EVERY 8 HOURS)
     Route: 048
  2. RANITIDINE. [Concomitant]
     Active Substance: RANITIDINE
     Indication: PRODUCT USED FOR UNKNOWN INDICATION
     Dosage: 50 MG, UNK
     Route: 065
  3. GLIVEC [Suspect]
     Active Substance: IMATINIB MESYLATE
     Indication: CHRONIC MYELOID LEUKAEMIA
     Dosage: 400 MG, QD
     Route: 048
     Dates: start: 20061113, end: 20161228

REACTIONS (7)
  - Cardiac failure [Fatal]
  - Cardiac disorder [Not Recovered/Not Resolved]
  - Oedema [Not Recovered/Not Resolved]
  - Congestive cardiomyopathy [Fatal]
  - Cardiac failure congestive [Fatal]
  - Fluid retention [Unknown]
  - Dyspnoea [Not Recovered/Not Resolved]
